FAERS Safety Report 9351822 (Version 1)
Quarter: 2013Q2

REPORT INFORMATION
  Report Type: Spontaneous
  Country: US (occurrence: US)
  Receive Date: 20130617
  Receipt Date: 20130617
  Transmission Date: 20140414
  Serious: No
  Sender: FDA-Public Use
  Company Number: US-AMGEN-USASP2013036489

PATIENT
  Age: 64 Year
  Sex: Female
  Weight: 73.47 kg

DRUGS (14)
  1. XGEVA [Suspect]
     Indication: BREAST CANCER METASTATIC
     Dosage: 120 MG, Q4WK
     Route: 058
     Dates: start: 20130413, end: 20130513
  2. ANASTROZOLE [Concomitant]
  3. AROMASIN [Concomitant]
     Indication: BREAST CANCER
     Dosage: 25 MG, QD
     Route: 048
     Dates: start: 20130228
  4. LORAZEPAM [Concomitant]
     Indication: ANXIETY
     Dosage: 1 MG, AS NECESSARY
  5. LISINOPRIL [Concomitant]
     Indication: HYPERTENSION
     Dosage: 20 MG, QD
     Route: 048
  6. LOVASTATIN [Concomitant]
     Indication: LIPIDS
     Dosage: 20 MG, QD
     Route: 048
  7. LEVOTHYROXINE [Concomitant]
     Indication: THYROID DISORDER
     Dosage: 50 MG, QD
     Route: 048
  8. CYANOCOBALAMIN [Concomitant]
     Dosage: 500 MG, QD
     Route: 048
  9. CALCIUM CARBONATE AND VITAMIN D [Concomitant]
     Dosage: UNK UNK, TID
     Route: 048
     Dates: start: 20091214
  10. MULTIVITAMINS PLUS IRON [Concomitant]
     Dosage: 250 MG, QOD
     Route: 048
     Dates: start: 20130128
  11. VITAMIN C                          /00008001/ [Concomitant]
     Dosage: 500 MG, QD
     Route: 048
     Dates: start: 20130128
  12. FISH OIL [Concomitant]
     Dosage: 1400 MG, QD
     Dates: start: 20130128
  13. VITAMIN D3 [Concomitant]
     Dosage: 1000 UNIT, QOD
  14. FLAXSEED OIL [Concomitant]
     Dosage: 1000 MG, QD
     Route: 048
     Dates: start: 20130129

REACTIONS (11)
  - Pyrexia [Recovering/Resolving]
  - Erythema [Recovered/Resolved]
  - Urticaria [Recovered/Resolved]
  - Nausea [Recovering/Resolving]
  - Fatigue [Recovering/Resolving]
  - Diarrhoea [Recovered/Resolved]
  - Retching [Unknown]
  - Flushing [Recovered/Resolved]
  - Dizziness [Unknown]
  - Vision blurred [Recovered/Resolved]
  - Arthralgia [Unknown]
